FAERS Safety Report 9911253 (Version 1)
Quarter: 2014Q1

REPORT INFORMATION
  Report Type: Report from Study
  Country: US (occurrence: US)
  Receive Date: 20140219
  Receipt Date: 20140219
  Transmission Date: 20141002
  Serious: Yes (Hospitalization, Other)
  Sender: FDA-Public Use
  Company Number: US-BRISTOL-MYERS SQUIBB COMPANY-20158721

PATIENT
  Age: 75 Year
  Sex: Female
  Weight: 71.2 kg

DRUGS (2)
  1. ORENCIA [Suspect]
     Indication: RHEUMATOID ARTHRITIS
     Dosage: LAST INF IN OCT2013
     Route: 042
     Dates: start: 201206
  2. METHOTREXATE [Concomitant]
     Dosage: 6 PILLS ONE DAY A WEEK

REACTIONS (5)
  - Breast cancer [Unknown]
  - Hip fracture [Unknown]
  - Foot operation [Unknown]
  - Cerebrovascular accident [Unknown]
  - Nasopharyngitis [Unknown]
